FAERS Safety Report 7086040-5 (Version None)
Quarter: 2010Q4

REPORT INFORMATION
  Report Type: 
  Country: None (occurrence: None)
  Receive Date: 20101004
  Receipt Date: 20090902
  Transmission Date: 20110411
  Serious: Yes (Other)
  Sender: FDA-Public Use
  Company Number: 208080USA

PATIENT
  Age: 48 Year
  Sex: Male

DRUGS (1)
  1. VENLAFAXINE HYDROCHLORIDE [Suspect]
     Indication: DEPRESSION
     Dosage: (75 MG), ORAL
     Route: 048

REACTIONS (3)
  - DEPRESSION [None]
  - MUSCLE TWITCHING [None]
  - SUICIDAL IDEATION [None]
